FAERS Safety Report 23451270 (Version 1)
Quarter: 2024Q1

REPORT INFORMATION
  Report Type: Spontaneous
  Country: US (occurrence: None)
  Receive Date: 20240128
  Receipt Date: 20240128
  Transmission Date: 20240410
  Serious: Yes (Hospitalization)
  Sender: FDA-Public Use
  Company Number: None

PATIENT
  Age: 65 Year
  Sex: Female
  Weight: 59.5 kg

DRUGS (1)
  1. JARDIANCE [Suspect]
     Active Substance: EMPAGLIFLOZIN
     Indication: Type 2 diabetes mellitus
     Dosage: FREQUENCY : DAILY;?
     Route: 048
     Dates: start: 20220301, end: 20221228

REACTIONS (7)
  - Asthenia [None]
  - Dyspnoea [None]
  - Dizziness [None]
  - Metabolic acidosis [None]
  - Hypotension [None]
  - Diabetic ketoacidosis [None]
  - Influenza A virus test positive [None]

NARRATIVE: CASE EVENT DATE: 20221228
